FAERS Safety Report 11654904 (Version 6)
Quarter: 2017Q1

REPORT INFORMATION
  Report Type: Spontaneous
  Country: CA (occurrence: CA)
  Receive Date: 20151023
  Receipt Date: 20170207
  Transmission Date: 20170428
  Serious: Yes (Other)
  Sender: FDA-Public Use
  Company Number: CA-ROCHE-1648219

PATIENT
  Age: 56 Year
  Sex: Female

DRUGS (9)
  1. ACTEMRA [Suspect]
     Active Substance: TOCILIZUMAB
     Indication: PRODUCT USED FOR UNKNOWN INDICATION
     Route: 065
  2. ENBREL [Suspect]
     Active Substance: ETANERCEPT
     Indication: RHEUMATOID ARTHRITIS
     Route: 058
     Dates: start: 20121108
  3. HUMIRA [Suspect]
     Active Substance: ADALIMUMAB
     Indication: RHEUMATOID ARTHRITIS
     Dosage: THERAPY DURATION: 156 DAYS
     Route: 058
  4. PLAQUENIL [Suspect]
     Active Substance: HYDROXYCHLOROQUINE SULFATE
     Indication: RHEUMATOID ARTHRITIS
     Route: 065
  5. METHOTREXATE SODIUM. [Suspect]
     Active Substance: METHOTREXATE SODIUM
     Indication: RHEUMATOID ARTHRITIS
     Route: 065
  6. XELJANZ [Suspect]
     Active Substance: TOFACITINIB CITRATE
     Indication: RHEUMATOID ARTHRITIS
     Route: 048
  7. PREDNISONE. [Suspect]
     Active Substance: PREDNISONE
     Indication: RHEUMATOID ARTHRITIS
     Route: 065
  8. ARAVA [Suspect]
     Active Substance: LEFLUNOMIDE
     Indication: RHEUMATOID ARTHRITIS
     Route: 048
  9. RITUXAN [Suspect]
     Active Substance: RITUXIMAB
     Indication: RHEUMATOID ARTHRITIS
     Dosage: THERAPY DURATION: 198 DAYS
     Route: 042

REACTIONS (25)
  - Gait disturbance [Unknown]
  - Spinal disorder [Unknown]
  - Contusion [Unknown]
  - Haemorrhage [Unknown]
  - Injection site erythema [Unknown]
  - Intervertebral disc degeneration [Unknown]
  - Hypersensitivity [Unknown]
  - Rash [Unknown]
  - Osteoporosis [Unknown]
  - Spinal operation [Unknown]
  - Femur fracture [Unknown]
  - Blood pressure increased [Unknown]
  - Pruritus generalised [Unknown]
  - Drug ineffective [Unknown]
  - Osteoarthritis [Unknown]
  - Pain [Unknown]
  - Injection site hypersensitivity [Unknown]
  - Abdominal discomfort [Unknown]
  - Therapy non-responder [Unknown]
  - Adverse drug reaction [Unknown]
  - Dysphagia [Unknown]
  - Injection site bruising [Unknown]
  - Oedema peripheral [Unknown]
  - Swelling [Unknown]
  - Back pain [Unknown]

NARRATIVE: CASE EVENT DATE: 20130112
